FAERS Safety Report 23285400 (Version 5)
Quarter: 2024Q2

REPORT INFORMATION
  Report Type: Report from Study
  Country: CA (occurrence: CA)
  Receive Date: 20231211
  Receipt Date: 20240507
  Transmission Date: 20240715
  Serious: Yes (Other)
  Sender: FDA-Public Use
  Company Number: CA-BoehringerIngelheim-2022-BI-200500

PATIENT
  Age: 75 Year
  Sex: Male

DRUGS (6)
  1. OFEV [Suspect]
     Active Substance: NINTEDANIB
     Indication: Idiopathic pulmonary fibrosis
     Route: 048
     Dates: start: 20221001
  2. OFEV [Suspect]
     Active Substance: NINTEDANIB
     Route: 048
     Dates: start: 20231001
  3. OFEV [Suspect]
     Active Substance: NINTEDANIB
     Route: 048
     Dates: end: 202307
  4. IMODIUM [Suspect]
     Active Substance: LOPERAMIDE HYDROCHLORIDE
     Indication: Product used for unknown indication
  5. WARFARIN [Concomitant]
     Active Substance: WARFARIN
     Indication: Product used for unknown indication
  6. APIXABAN [Concomitant]
     Active Substance: APIXABAN
     Indication: Product used for unknown indication

REACTIONS (24)
  - Gastric haemorrhage [Recovered/Resolved]
  - International normalised ratio abnormal [Not Recovered/Not Resolved]
  - Diarrhoea [Recovered/Resolved]
  - Lower respiratory tract infection [Recovering/Resolving]
  - Polyp [Unknown]
  - Constipation [Recovering/Resolving]
  - Pain [Recovering/Resolving]
  - Dysphonia [Not Recovered/Not Resolved]
  - Decreased appetite [Not Recovered/Not Resolved]
  - Diarrhoea [Recovered/Resolved]
  - Rhinorrhoea [Unknown]
  - Pruritus [Not Recovered/Not Resolved]
  - Dyspnoea exertional [Unknown]
  - Angiopathy [Unknown]
  - Productive cough [Not Recovered/Not Resolved]
  - Sinus congestion [Unknown]
  - Fatigue [Not Recovered/Not Resolved]
  - Gastrointestinal motility disorder [Recovered/Resolved]
  - Nausea [Not Recovered/Not Resolved]
  - Muscle spasms [Unknown]
  - Faeces pale [Unknown]
  - Throat clearing [Unknown]
  - Diarrhoea [Not Recovered/Not Resolved]
  - Procedural haemorrhage [Unknown]

NARRATIVE: CASE EVENT DATE: 20220101
